FAERS Safety Report 21086598 (Version 15)
Quarter: 2024Q3

REPORT INFORMATION
  Report Type: Spontaneous
  Country: CA (occurrence: CA)
  Receive Date: 20220715
  Receipt Date: 20240814
  Transmission Date: 20241017
  Serious: Yes (Other)
  Sender: CELLTRION
  Company Number: CA-CELLTRION INC.-2022CA010618

PATIENT

DRUGS (18)
  1. INFLECTRA [Suspect]
     Active Substance: INFLIXIMAB-DYYB
     Indication: Crohn^s disease
     Dosage: 1 DF, INDUCTION WK 0, 2 AND 6 (WK 0-5MG/KG DAY 1+5MG/KG DAY 2 THEN 10MG/KG THEREAFTER)
     Route: 042
  2. INFLECTRA [Suspect]
     Active Substance: INFLIXIMAB-DYYB
     Dosage: 400 MG,WEEK 0, DAY 1 DOSE
     Route: 042
     Dates: start: 20220623, end: 20220623
  3. INFLECTRA [Suspect]
     Active Substance: INFLIXIMAB-DYYB
     Dosage: 400 MG,WEEK 0, DAY 2 DOSE
     Route: 042
     Dates: start: 20220624, end: 20220624
  4. INFLECTRA [Suspect]
     Active Substance: INFLIXIMAB-DYYB
     Dosage: 400 MG,WEEK 0, DAY 2 DOSE
     Route: 042
     Dates: start: 20220624
  5. INFLECTRA [Suspect]
     Active Substance: INFLIXIMAB-DYYB
     Dosage: 650 MG,(SUPPOSED TO RECEIVE 10 MG/KG) WEEK 2, 6 THEN EVERY 8 WEEK
     Route: 042
     Dates: start: 20220706
  6. INFLECTRA [Suspect]
     Active Substance: INFLIXIMAB-DYYB
     Dosage: 700 MG, WEEK 2, 6 THEN EVERY 8 WEEK
     Route: 042
     Dates: start: 20220706
  7. INFLECTRA [Suspect]
     Active Substance: INFLIXIMAB-DYYB
     Dosage: 700 MG,WEEK 2, 6 THEN EVERY 8 WEEK
     Route: 042
     Dates: start: 20220805
  8. INFLECTRA [Suspect]
     Active Substance: INFLIXIMAB-DYYB
     Dosage: 700 MG,WEEK 2, 6 THEN EVERY 8 WEEK
     Route: 042
     Dates: start: 20221004
  9. INFLECTRA [Suspect]
     Active Substance: INFLIXIMAB-DYYB
     Dosage: 700 MG,WEEK 2, 6 THEN EVERY 8 WEEK
     Route: 042
     Dates: start: 20221125
  10. INFLECTRA [Suspect]
     Active Substance: INFLIXIMAB-DYYB
     Dosage: 700 MG,WEEK 2, 6 THEN EVERY 8 WEEK
     Route: 042
     Dates: start: 20230118
  11. INFLECTRA [Suspect]
     Active Substance: INFLIXIMAB-DYYB
     Dosage: 330 MG,(5MG/KG), EVERY 8 WEEKS
     Route: 042
     Dates: start: 20230313
  12. INFLECTRA [Suspect]
     Active Substance: INFLIXIMAB-DYYB
     Dosage: 5 MG/KG,EVERY 8 WEEKS
     Route: 042
     Dates: start: 20230828
  13. INFLECTRA [Suspect]
     Active Substance: INFLIXIMAB-DYYB
     Dosage: 360 MG,5MG/KG, EVERY 8 WEEKS
     Route: 042
     Dates: start: 20231023
  14. INFLECTRA [Suspect]
     Active Substance: INFLIXIMAB-DYYB
     Dosage: 5 MG/KG,EVERY 8 WEEKS
     Route: 042
     Dates: start: 20240212
  15. INFLECTRA [Suspect]
     Active Substance: INFLIXIMAB-DYYB
     Dosage: 400 MG, 5 MG/KG, EVERY 8 WEEKS
     Route: 042
     Dates: start: 20240408
  16. INFLECTRA [Suspect]
     Active Substance: INFLIXIMAB-DYYB
     Dosage: 5 MG/KG, EVERY 8 WEEKS (400 MG FIXED DOSE)
     Route: 042
     Dates: start: 20240603
  17. INFLECTRA [Suspect]
     Active Substance: INFLIXIMAB-DYYB
     Dosage: 400 MG, EVERY 8 WEEKS (5 MG/KG, EVERY 8 WEEKS (400 MG FIXED DOSE)
     Route: 042
     Dates: start: 20240730
  18. BUDESONIDE [Concomitant]
     Active Substance: BUDESONIDE
     Indication: Crohn^s disease
     Dosage: 9 MG, DAILY

REACTIONS (14)
  - Uveitis [Unknown]
  - Condition aggravated [Recovered/Resolved]
  - Dizziness [Recovered/Resolved]
  - Arthralgia [Recovered/Resolved]
  - Stress [Unknown]
  - Blood pressure decreased [Recovering/Resolving]
  - Skin plaque [Not Recovered/Not Resolved]
  - Weight decreased [Unknown]
  - Maternal exposure during pregnancy [Unknown]
  - Off label use [Unknown]
  - Off label use [Unknown]
  - Intentional product use issue [Unknown]
  - Incorrect dose administered [Unknown]
  - Inappropriate schedule of product administration [Unknown]

NARRATIVE: CASE EVENT DATE: 20220601
